FAERS Safety Report 9135195 (Version 9)
Quarter: 2013Q4

REPORT INFORMATION
  Report Type: Report from Study
  Country: BR (occurrence: BR)
  Receive Date: 20130304
  Receipt Date: 20131126
  Transmission Date: 20140711
  Serious: Yes (Life-Threatening, Hospitalization, Other)
  Sender: FDA-Public Use
  Company Number: PHHY2013BR020036

PATIENT
  Age: 38 Year
  Sex: Male

DRUGS (22)
  1. SANDOSTATIN LAR [Suspect]
     Indication: BLOOD GROWTH HORMONE INCREASED
     Dosage: 10 MG, 1 AMPOULE
     Dates: start: 200006
  2. SANDOSTATIN LAR [Suspect]
     Dosage: 20 MG, 1 AMPOULE
     Dates: start: 2000, end: 2001
  3. SANDOSTATIN LAR [Suspect]
     Dosage: 30 MG, UNK
     Dates: start: 2000
  4. SANDOSTATIN LAR [Suspect]
     Dosage: 30 MG, 1 AMPOULE MONTHLY
     Dates: start: 200106
  5. SANDOSTATIN LAR [Suspect]
     Dosage: 1 DF (1 AMPOULE), A MONTH
     Dates: start: 200007
  6. SANDOSTATIN LAR [Suspect]
     Dosage: 30 MG, UNK
     Dates: start: 20130415
  7. SANDOSTATIN LAR [Suspect]
     Dosage: 30 MG, UNK
     Dates: start: 20130726
  8. SANDOSTATIN LAR [Suspect]
     Dosage: UNK UKN, UNK
     Dates: start: 20131016
  9. DEPOSTERON 30 [Concomitant]
     Indication: HORMONE REPLACEMENT THERAPY
     Dosage: 1 DF, (01 INJECTION PER MONTH)
     Route: 030
     Dates: start: 200006
  10. DEPOSTERON 30 [Concomitant]
     Dosage: UNK UKN, UNK
     Dates: start: 20131015
  11. OMEPRAZOLE [Concomitant]
     Indication: ABDOMINAL DISCOMFORT
     Dosage: 1 CAPSULE PER DAY
  12. OMEPRAZOLE [Concomitant]
     Dosage: 1 DF (1 TABLET IN FASTING IN MORNING)
  13. AAS [Concomitant]
     Indication: ANTICOAGULANT THERAPY
     Dosage: 3 TABLETS PER DAY
     Route: 048
     Dates: start: 201207
  14. AMLODIPINE [Concomitant]
     Indication: BLOOD PRESSURE ABNORMAL
     Dosage: 40 MG, 1 TABLET PER DAY
     Route: 048
     Dates: start: 201207
  15. PURAN T4 [Concomitant]
     Indication: THYROID DISORDER
     Dosage: 1 TABLET AND HALF, A DAY
  16. SIMVASTATIN [Concomitant]
     Dosage: 01 INJECTION PER MONTH
     Route: 030
  17. SIMVASTATIN [Concomitant]
     Dosage: 1 DF(1 TABLET A DAY)
     Dates: start: 201207
  18. PREDNISONE [Concomitant]
     Indication: THYROID DISORDER
     Dosage: ONE AND HALF TABLET PER DAY
     Route: 048
  19. CARBAMAZEPINE [Concomitant]
     Indication: CONVULSION PROPHYLAXIS
     Dosage: 4 DF, UNK
  20. CARBAMAZEPINE [Concomitant]
     Indication: SYNCOPE
     Dosage: 3 DF, DAILY
  21. CARBAMAZEPINE [Concomitant]
     Dosage: 2 DF, DAILY
  22. CARBAMAZEPINE [Concomitant]
     Dosage: 03 DF, QD (EVERY 8 HRS)
     Route: 048
     Dates: start: 2000

REACTIONS (32)
  - Coma [Recovering/Resolving]
  - Convulsion [Recovered/Resolved]
  - Cerebral ischaemia [Recovering/Resolving]
  - Cerebrovascular accident [Recovering/Resolving]
  - Musculoskeletal stiffness [Recovering/Resolving]
  - Ischaemia [Unknown]
  - Infection [Recovering/Resolving]
  - Blood pressure diastolic increased [Recovering/Resolving]
  - Blood cholesterol increased [Recovered/Resolved]
  - Hemiparesis [Not Recovered/Not Resolved]
  - Tracheostomy infection [Recovering/Resolving]
  - Calculus bladder [Recovering/Resolving]
  - Paralysis [Recovering/Resolving]
  - Weight decreased [Recovering/Resolving]
  - Blood growth hormone increased [Recovered/Resolved]
  - Movement disorder [Recovering/Resolving]
  - Blood pressure systolic increased [Recovering/Resolving]
  - Abasia [Recovering/Resolving]
  - Dysphagia [Recovering/Resolving]
  - Balance disorder [Recovered/Resolved]
  - Hypersomnia [Recovering/Resolving]
  - Blood pressure abnormal [Recovering/Resolving]
  - Dysstasia [Recovered/Resolved]
  - Pyrexia [Recovering/Resolving]
  - Aphasia [Recovering/Resolving]
  - Muscular weakness [Recovering/Resolving]
  - Somnolence [Unknown]
  - Choking [Unknown]
  - Vomiting [Recovering/Resolving]
  - Weight increased [Unknown]
  - Asthenia [Unknown]
  - Drug ineffective [Recovering/Resolving]
